FAERS Safety Report 5934930-6 (Version None)
Quarter: 2008Q4

REPORT INFORMATION
  Report Type: 
  Country: None (occurrence: None)
  Receive Date: 20081027
  Receipt Date: 20081017
  Transmission Date: 20090506
  Serious: Yes (Disabling)
  Sender: FDA-Public Use
  Company Number: ADE2008-0355

PATIENT
  Age: 73 Year
  Sex: Male
  Weight: 79 kg

DRUGS (5)
  1. BISOPROLOL FUMARATE [Suspect]
     Indication: AORTIC STENOSIS
     Dosage: 2.5MG PO
     Route: 048
     Dates: start: 20080724, end: 20080804
  2. BISOPROLOL FUMARATE [Suspect]
     Indication: HYPERTENSION
     Dosage: 2.5MG PO
     Route: 048
     Dates: start: 20080724, end: 20080804
  3. ASPIRIN [Concomitant]
  4. BENDROFLUAZIDE [Concomitant]
  5. SIMVASTATIN [Concomitant]

REACTIONS (8)
  - DIZZINESS [None]
  - FATIGUE [None]
  - HEADACHE [None]
  - INSOMNIA [None]
  - JOINT EFFUSION [None]
  - JOINT SWELLING [None]
  - MUCOSAL INFLAMMATION [None]
  - RASH [None]
